FAERS Safety Report 4543075-1 (Version None)
Quarter: 2004Q4

REPORT INFORMATION
  Report Type: 
  Country: None (occurrence: None)
  Receive Date: 20041229
  Receipt Date: 20041215
  Transmission Date: 20050328
  Serious: Yes (Other)
  Sender: FDA-Public Use
  Company Number: 2004-DE-06227GD

PATIENT

DRUGS (3)
  1. NEVIRAPINE (NEVIRAPINE) [Suspect]
     Indication: HIV INFECTION
     Dosage: 400 MG (TWICE DAILY)
  2. NUCLEOSIDE REVERSE TRANSCRIPTASE [Concomitant]
  3. INHIBITORS (ANTIVIRALS FOR SYSTEMIC USE) [Concomitant]

REACTIONS (6)
  - BLOOD HIV RNA BELOW ASSAY LIMIT [None]
  - DRUG INEFFECTIVE [None]
  - DRUG LEVEL DECREASED [None]
  - DRUG RESISTANCE [None]
  - TREATMENT NONCOMPLIANCE [None]
  - VIRAL MUTATION IDENTIFIED [None]
